FAERS Safety Report 17916724 (Version 1)
Quarter: 2020Q2

REPORT INFORMATION
  Report Type: Spontaneous
  Country: MX (occurrence: MX)
  Receive Date: 20200619
  Receipt Date: 20200619
  Transmission Date: 20200714
  Serious: Yes (Other)
  Sender: FDA-Public Use
  Company Number: MX-ALVOGEN-2020-ALVOGEN-108625

PATIENT
  Age: 73 Year
  Sex: Female
  Weight: 67 kg

DRUGS (9)
  1. PRESONE 1 [Concomitant]
     Indication: PRODUCT USED FOR UNKNOWN INDICATION
     Dosage: 1 DAILY
     Route: 065
  2. CALTRATE [Concomitant]
     Active Substance: CALCIUM CARBONATE
     Indication: OSTEOPOROSIS
     Dosage: 1 TABLET DAILY FOR 3 MONTHS THEN DISCONTINUED FOR 3 MONTHS AND RESUMED FOR 3 MONTHS, SO ON
     Route: 048
  3. TAMOXIFEN [Concomitant]
     Active Substance: TAMOXIFEN
     Indication: PRODUCT USED FOR UNKNOWN INDICATION
     Dosage: DOSE AND FREQUENCY UNKNOWN
     Route: 065
  4. ASCORBIC ACID. [Concomitant]
     Active Substance: ASCORBIC ACID
     Indication: PRODUCT USED FOR UNKNOWN INDICATION
     Dosage: 1 DAILY
     Route: 065
  5. LISINOPRIL. [Suspect]
     Active Substance: LISINOPRIL
     Indication: PRODUCT USED FOR UNKNOWN INDICATION
     Dosage: HALF A TABLET IN THE MORNING AND HALF A TABLET IN THE EVENING
     Route: 048
     Dates: start: 2010
  6. TOCOPHEROL [Concomitant]
     Active Substance: TOCOPHEROL
     Indication: SKIN DISORDER
     Dosage: 1000 MG SLOW RELEASE GRANULES, 1 DOSAGE FORM, BY MOUTH ONCE A DAY
     Route: 048
     Dates: start: 2005
  7. QUAL [Concomitant]
     Indication: PAIN
     Dosage: DOSE AND FREQUENCY UNKNOWN
     Route: 065
  8. LETROZOLE. [Concomitant]
     Active Substance: LETROZOLE
     Indication: BREAST CANCER
     Dosage: 1 DOSAGE FORM, 1 TIME A DAY THE DRUG HAS BEEN DISCONTINUED AND THEN RESUMES TREATMENT SEVERAL TIMES
     Route: 048
     Dates: start: 201410
  9. EXEMESTANE. [Concomitant]
     Active Substance: EXEMESTANE
     Indication: PRODUCT USED FOR UNKNOWN INDICATION
     Dosage: DOSE AND FREQUENCY UNKNOWN
     Route: 065

REACTIONS (5)
  - Proctalgia [Unknown]
  - Pain [Unknown]
  - Breast cancer recurrent [Unknown]
  - Fatigue [Unknown]
  - Medication error [Unknown]
